FAERS Safety Report 12292635 (Version 1)
Quarter: 2016Q2

REPORT INFORMATION
  Report Type: Report from Study
  Country: US (occurrence: US)
  Receive Date: 20160421
  Receipt Date: 20160421
  Transmission Date: 20160815
  Serious: No
  Sender: FDA-Public Use
  Company Number: US-AMGEN-USASL2016023201

PATIENT
  Age: 77 Year
  Sex: Male

DRUGS (2)
  1. PRALUENT [Concomitant]
     Active Substance: ALIROCUMAB
  2. REPATHA [Suspect]
     Active Substance: EVOLOCUMAB
     Indication: LOW DENSITY LIPOPROTEIN INCREASED
     Dosage: 140 MG, Q2WK
     Route: 065
     Dates: start: 20150716

REACTIONS (11)
  - Neck pain [Unknown]
  - Low density lipoprotein decreased [Unknown]
  - Hernia [Unknown]
  - Facial pain [Unknown]
  - Constipation [Unknown]
  - Local swelling [Unknown]
  - Swelling face [Unknown]
  - Bladder pain [Unknown]
  - Abdominal pain [Unknown]
  - Ear congestion [Unknown]
  - Bronchitis [Recovered/Resolved]

NARRATIVE: CASE EVENT DATE: 201512
